FAERS Safety Report 8513568-0 (Version None)
Quarter: 2012Q3

REPORT INFORMATION
  Report Type: 
  Country: None (occurrence: None)
  Receive Date: 20120717
  Receipt Date: 20120706
  Transmission Date: 20120928
  Serious: Yes (Hospitalization)
  Sender: FDA-Public Use
  Company Number: AU-BRISTOL-MYERS SQUIBB COMPANY-16710345

PATIENT
  Age: 74 Year
  Sex: Male
  Weight: 131 kg

DRUGS (14)
  1. MICARDIS [Concomitant]
     Indication: NAUSEA
  2. PANAMAX [Concomitant]
     Indication: NAUSEA
  3. MOTILIUM [Concomitant]
     Indication: NAUSEA
  4. PANAMAX [Concomitant]
     Indication: VOMITING
  5. ALLOPURINOL [Concomitant]
     Indication: GOUT
  6. ESOMEPRAZOLE [Concomitant]
     Indication: ANXIETY
  7. LORAZEPAM [Concomitant]
     Indication: ANXIETY
  8. BISOPROLOL FUMARATE [Concomitant]
     Indication: VOMITING
  9. MOTILIUM [Concomitant]
     Indication: VOMITING
  10. PACLITAXEL [Suspect]
     Indication: GASTRIC CANCER
     Dosage: DAY 1 8 AND 15 EVEREY 4 WEEK CYCLE LAST DOSE ON 14JUN2012
     Route: 042
     Dates: start: 20120412
  11. NOVOLOG MIX 70/30 [Concomitant]
  12. FUROSEMIDE [Concomitant]
     Indication: ANXIETY
  13. BISOPROLOL FUMARATE [Concomitant]
     Indication: NAUSEA
  14. MICARDIS [Concomitant]
     Indication: VOMITING

REACTIONS (1)
  - DYSPNOEA [None]
